FAERS Safety Report 7260719-4 (Version None)
Quarter: 2011Q1

REPORT INFORMATION
  Report Type: 
  Country: None (occurrence: None)
  Receive Date: 20110130
  Receipt Date: 20101221
  Transmission Date: 20110831
  Serious: No
  Sender: FDA-Public Use
  Company Number: US-ABBOTT-10P-163-0693049-00

PATIENT
  Sex: Female
  Weight: 37.001 kg

DRUGS (1)
  1. HUMIRA [Suspect]
     Indication: CROHN'S DISEASE
     Dates: start: 20100201

REACTIONS (3)
  - PHARYNGITIS STREPTOCOCCAL [None]
  - CROHN'S DISEASE [None]
  - GUTTATE PSORIASIS [None]
